FAERS Safety Report 7996475-1 (Version None)
Quarter: 2011Q4

REPORT INFORMATION
  Report Type: 
  Country: None (occurrence: None)
  Receive Date: 20111220
  Receipt Date: 20111213
  Transmission Date: 20120403
  Serious: Yes (Hospitalization, Other)
  Sender: FDA-Public Use
  Company Number: US-ASTRAZENECA-2011SE28741

PATIENT
  Age: 77 Year
  Sex: Female
  Weight: 84.4 kg

DRUGS (2)
  1. NEXIUM [Suspect]
     Route: 048
  2. PLAVIX [Concomitant]

REACTIONS (16)
  - PERIPHERAL ISCHAEMIA [None]
  - RENAL FAILURE CHRONIC [None]
  - HYPERCHOLESTEROLAEMIA [None]
  - EXOSTOSIS [None]
  - BARRETT'S OESOPHAGUS [None]
  - CAROTID ARTERY STENOSIS [None]
  - OESOPHAGEAL CARCINOMA [None]
  - NERVE ROOT COMPRESSION [None]
  - THYROID DISORDER [None]
  - HIATUS HERNIA [None]
  - GASTROOESOPHAGEAL REFLUX DISEASE [None]
  - THROMBOSIS [None]
  - PERIPHERAL ARTERIAL OCCLUSIVE DISEASE [None]
  - LYMPHOEDEMA [None]
  - SKIN DISORDER [None]
  - INTERVERTEBRAL DISC DEGENERATION [None]
